FAERS Safety Report 8248622-4 (Version None)
Quarter: 2012Q1

REPORT INFORMATION
  Report Type: 
  Country: None (occurrence: None)
  Receive Date: 20120330
  Receipt Date: 20111001
  Transmission Date: 20120608
  Serious: Yes (Hospitalization)
  Sender: FDA-Public Use
  Company Number: PHHY2011TR89417

PATIENT
  Age: 7 Year
  Sex: Female

DRUGS (6)
  1. DESMOPRESSIN ACETATE [Suspect]
     Dosage: 0.1 MG, UNK
  2. DESMOPRESSIN ACETATE [Suspect]
     Dosage: 0.05 MG, UNK
  3. LAMOTRGINE [Suspect]
     Indication: CONVULSION
     Dosage: 0.25 MG/KG, UNK
  4. CARBAMAZEPINE [Suspect]
     Dosage: 20 MG/KG, UNK
  5. DESMOPRESSIN ACETATE [Suspect]
     Dosage: 0.025 MG, UNK
  6. VALPROIC ACID [Suspect]
     Dosage: 40 MG/KG, UNK

REACTIONS (13)
  - GRAND MAL CONVULSION [None]
  - HAEMATOCRIT DECREASED [None]
  - SPECIFIC GRAVITY URINE ABNORMAL [None]
  - INAPPROPRIATE ANTIDIURETIC HORMONE SECRETION [None]
  - EXTENSOR PLANTAR RESPONSE [None]
  - URINE OUTPUT DECREASED [None]
  - PUPILLARY REFLEX IMPAIRED [None]
  - DEPRESSED LEVEL OF CONSCIOUSNESS [None]
  - URINE SODIUM INCREASED [None]
  - VOMITING [None]
  - HYPONATRAEMIA [None]
  - COMA SCALE ABNORMAL [None]
  - HYPOURICAEMIA [None]
